FAERS Safety Report 21319119 (Version 3)
Quarter: 2022Q4

REPORT INFORMATION
  Report Type: Spontaneous
  Country: US (occurrence: US)
  Receive Date: 20220911
  Receipt Date: 20221014
  Transmission Date: 20230113
  Serious: No
  Sender: FDA-Public Use
  Company Number: US-SA-SAC20220905001327

PATIENT
  Age: 28 Year
  Sex: Female

DRUGS (2)
  1. DUPIXENT [Suspect]
     Active Substance: DUPILUMAB
     Indication: Dermatitis atopic
     Dosage: 300 MG, QOW
     Route: 058
     Dates: start: 20220603
  2. TRETINOIN [Concomitant]
     Active Substance: TRETINOIN
     Dosage: UNK

REACTIONS (6)
  - Dry skin [Unknown]
  - Mental status changes [Unknown]
  - Malaise [Unknown]
  - Eyelid irritation [Recovered/Resolved]
  - Facial discomfort [Recovered/Resolved]
  - Dermatitis atopic [Unknown]

NARRATIVE: CASE EVENT DATE: 20220801
